FAERS Safety Report 21705259 (Version 1)
Quarter: 2022Q4

REPORT INFORMATION
  Report Type: Spontaneous
  Country: US (occurrence: US)
  Receive Date: 20221209
  Receipt Date: 20221209
  Transmission Date: 20230113
  Serious: Yes (Hospitalization, Other)
  Sender: FDA-Public Use
  Company Number: US-Accord-290887

PATIENT
  Age: 3 Decade
  Sex: Male

DRUGS (7)
  1. FLUOROURACIL [Suspect]
     Active Substance: FLUOROURACIL
     Indication: Rectal cancer
     Dosage: CONTINUOUS INFUSION 5-FU DELIVERED BY HIS COMPUTERIZED AMBULATORY DELIVERY DEVICE (CADD) PUMP
     Dates: start: 202109
  2. OXALIPLATIN [Concomitant]
     Active Substance: OXALIPLATIN
     Indication: Rectal cancer
     Dates: start: 2021
  3. LEUCOVORIN [Concomitant]
     Active Substance: LEUCOVORIN
     Indication: Rectal cancer
     Dates: start: 2021
  4. NIFEDIPINE [Concomitant]
     Active Substance: NIFEDIPINE
     Indication: Prophylaxis
     Dosage: NIFEDIPINE ER 30 MG FIVE HOURS BEFORE
     Dates: start: 2021
  5. ISOSORBIDE MONONITRATE [Concomitant]
     Active Substance: ISOSORBIDE MONONITRATE
     Indication: Prophylaxis
     Dosage: THREE HOURS BEFORE
     Dates: start: 2021
  6. DILTIAZEM [Concomitant]
     Active Substance: DILTIAZEM
     Indication: Prophylaxis
     Dosage: 30 MG ONE HOUR BEFORE THE PLANNED ADMINISTRATION OF THE 5-FU BOLUS
     Dates: start: 2021
  7. FLUOROURACIL [Suspect]
     Active Substance: FLUOROURACIL
     Indication: Rectal cancer
     Dosage: 3RD CYCLE
     Dates: start: 2021

REACTIONS (3)
  - Electrocardiogram ST segment elevation [Recovered/Resolved]
  - Chest pain [Recovered/Resolved]
  - Ventricular tachycardia [Recovered/Resolved]

NARRATIVE: CASE EVENT DATE: 20210901
